FAERS Safety Report 20095053 (Version 4)
Quarter: 2022Q2

REPORT INFORMATION
  Report Type: Spontaneous
  Country: US (occurrence: US)
  Receive Date: 20211122
  Receipt Date: 20220415
  Transmission Date: 20220721
  Serious: No
  Sender: FDA-Public Use
  Company Number: US-BIOVITRUM-2021US8778

PATIENT
  Age: 66 Year
  Sex: Female

DRUGS (2)
  1. KINERET [Suspect]
     Active Substance: ANAKINRA
     Indication: Still^s disease
     Route: 058
     Dates: start: 20190612
  2. COVID-19 VACCINE NOS [Suspect]
     Active Substance: COVID-19 VACCINE NOS

REACTIONS (3)
  - Dizziness [Unknown]
  - Product dose omission issue [Unknown]
  - Off label use [Not Recovered/Not Resolved]

NARRATIVE: CASE EVENT DATE: 20190612
